FAERS Safety Report 12068195 (Version 1)
Quarter: 2016Q1

REPORT INFORMATION
  Report Type: Spontaneous
  Country: US (occurrence: US)
  Receive Date: 20160211
  Receipt Date: 20160211
  Transmission Date: 20160526
  Serious: No
  Sender: FDA-Public Use
  Company Number: US-ALLERGAN-1517859US

PATIENT
  Age: 43 Year
  Sex: Female

DRUGS (2)
  1. BOTOX [Suspect]
     Active Substance: ONABOTULINUMTOXINA
     Indication: MIGRAINE
     Dosage: 155 UNITS, SINGLE
     Route: 030
     Dates: start: 201506, end: 201506
  2. BOTOX [Suspect]
     Active Substance: ONABOTULINUMTOXINA
     Dosage: 145 UNITS, SINGLE
     Route: 030
     Dates: start: 201508, end: 201508

REACTIONS (2)
  - Facial paralysis [Recovered/Resolved]
  - Hypokinesia [Recovered/Resolved]

NARRATIVE: CASE EVENT DATE: 201506
